FAERS Safety Report 14757462 (Version 1)
Quarter: 2018Q2

REPORT INFORMATION
  Report Type: Spontaneous
  Country: NL (occurrence: NL)
  Receive Date: 20180413
  Receipt Date: 20180413
  Transmission Date: 20180711
  Serious: Yes (Other)
  Sender: FDA-Public Use
  Company Number: NL-AUROBINDO-AUR-APL-2018-019337

PATIENT
  Age: 67 Year
  Sex: Female

DRUGS (3)
  1. LORAZEPAM. [Concomitant]
     Active Substance: LORAZEPAM
     Indication: PRODUCT USED FOR UNKNOWN INDICATION
     Dosage: 1MG 1X PER DAG
     Route: 065
     Dates: start: 20160503
  2. ESCITALOPRAM [Suspect]
     Active Substance: ESCITALOPRAM OXALATE
     Indication: PRODUCT USED FOR UNKNOWN INDICATION
     Dosage: 1X PER DAG 1 STUK
     Route: 065
     Dates: start: 20150320
  3. LEVOCETIRIZINE [Concomitant]
     Active Substance: LEVOCETIRIZINE
     Indication: PRODUCT USED FOR UNKNOWN INDICATION
     Dosage: UNK
     Route: 065

REACTIONS (1)
  - Glaucoma [Recovered/Resolved]

NARRATIVE: CASE EVENT DATE: 2017
